FAERS Safety Report 9550766 (Version 3)
Quarter: 2015Q2

REPORT INFORMATION
  Report Type: Report from Study
  Country: US (occurrence: US)
  Receive Date: 20130924
  Receipt Date: 20150430
  Transmission Date: 20150821
  Serious: Yes (Other)
  Sender: FDA-Public Use
  Company Number: US-SANOFI-AVENTIS-2013SA047902

PATIENT
  Age: 55 Year
  Sex: Female

DRUGS (3)
  1. AUBAGIO [Suspect]
     Active Substance: TERIFLUNOMIDE
     Indication: RELAPSING-REMITTING MULTIPLE SCLEROSIS
     Route: 048
  2. AUBAGIO [Suspect]
     Active Substance: TERIFLUNOMIDE
     Indication: RELAPSING-REMITTING MULTIPLE SCLEROSIS
     Route: 048
     Dates: start: 20130409
  3. PROVIGIL [Suspect]
     Active Substance: MODAFINIL
     Route: 065

REACTIONS (21)
  - Decreased appetite [Not Recovered/Not Resolved]
  - Fatigue [Not Recovered/Not Resolved]
  - Fatigue [Unknown]
  - Unevaluable event [Unknown]
  - Drug dose omission [Unknown]
  - Weight decreased [Not Recovered/Not Resolved]
  - Insomnia [Not Recovered/Not Resolved]
  - Dizziness [Unknown]
  - Nausea [Unknown]
  - Gait disturbance [Unknown]
  - Asthenia [Unknown]
  - Laboratory test abnormal [Unknown]
  - Alopecia [Not Recovered/Not Resolved]
  - Bronchitis [Unknown]
  - Blood calcium increased [Unknown]
  - Low density lipoprotein increased [Unknown]
  - Human chorionic gonadotropin increased [Unknown]
  - Diarrhoea [Not Recovered/Not Resolved]
  - Multiple sclerosis relapse [Not Recovered/Not Resolved]
  - Blood albumin increased [Unknown]
  - Influenza like illness [Unknown]

NARRATIVE: CASE EVENT DATE: 2013
